FAERS Safety Report 16533796 (Version 3)
Quarter: 2024Q2

REPORT INFORMATION
  Report Type: Other
  Country: CA (occurrence: CA)
  Receive Date: 20190704
  Receipt Date: 20240628
  Transmission Date: 20240716
  Serious: Yes (Hospitalization)
  Sender: FDA-Public Use
  Company Number: CA-APOTEX-2019AP017327

PATIENT
  Age: 56 Year
  Sex: Female

DRUGS (7)
  1. GEMCITABINE [Suspect]
     Active Substance: GEMCITABINE
     Indication: Pancreatic carcinoma
     Dosage: 1320 MG, 1 EVERY 4 WEEKS
     Route: 041
  2. PACLITAXEL [Suspect]
     Active Substance: PACLITAXEL
     Indication: Pancreatic carcinoma
     Dosage: 165 MILLIGRAM, 1 EVERY 4 WEEKS
     Route: 041
  3. ABRAXANE [Suspect]
     Active Substance: PACLITAXEL
     Indication: Pancreatic carcinoma
     Dosage: 165 MG, 1 EVERY 4 WEEKS
     Route: 041
  4. DURVALUMAB [Suspect]
     Active Substance: DURVALUMAB
     Indication: Pancreatic carcinoma
     Dosage: 1500 MG, 1 EVERY 4 WEEKS
     Route: 041
  5. TREMELIMUMAB [Suspect]
     Active Substance: TREMELIMUMAB
     Indication: Pancreatic carcinoma
     Dosage: 75 MG, 1 EVERY 4 WEEKS
     Route: 041
  6. PANCREATIN [Concomitant]
     Active Substance: PANCRELIPASE
     Indication: Dyspepsia
     Dosage: UNK
     Route: 065
  7. CARICA PAPAYA LEAF;PANCREATIN [Concomitant]
     Indication: Dyspepsia
     Dosage: UNK
     Route: 065

REACTIONS (1)
  - Infusion site infection [Recovered/Resolved]
